FAERS Safety Report 20683655 (Version 1)
Quarter: 2022Q2

REPORT INFORMATION
  Report Type: Spontaneous
  Country: US (occurrence: None)
  Receive Date: 20220407
  Receipt Date: 20220407
  Transmission Date: 20220721
  Serious: Yes (Hospitalization, Other)
  Sender: FDA-Public Use
  Company Number: US-Orexo US, Inc.-ORE202203-000013

PATIENT
  Age: 25 Year
  Sex: Male

DRUGS (2)
  1. BUPRENORPHINE\NALOXONE [Suspect]
     Active Substance: BUPRENORPHINE\NALOXONE
     Indication: Drug withdrawal syndrome
     Dosage: UNKNOWN
  2. FENTANYL [Concomitant]
     Active Substance: FENTANYL
     Indication: Product used for unknown indication
     Dosage: UNKNOWN

REACTIONS (3)
  - Stress cardiomyopathy [Recovering/Resolving]
  - Acute pulmonary oedema [Recovering/Resolving]
  - Drug withdrawal syndrome [Unknown]
